FAERS Safety Report 6013431-3 (Version None)
Quarter: 2008Q4

REPORT INFORMATION
  Report Type: 
  Country: None (occurrence: None)
  Receive Date: 20081216
  Receipt Date: 20080219
  Transmission Date: 20090506
  Serious: Yes (Other)
  Sender: FDA-Public Use
  Company Number: US-WYE-H02724608

PATIENT
  Sex: Female

DRUGS (3)
  1. EFFEXOR XR [Suspect]
     Indication: DEPRESSION
     Dosage: 150 MG 1X PER 1 DAY, ORAL
     Route: 048
     Dates: start: 20080206, end: 20080219
  2. SEROQUEL [Concomitant]
  3. KLONOPIN [Concomitant]

REACTIONS (4)
  - ANXIETY [None]
  - ERYTHEMA [None]
  - NERVOUSNESS [None]
  - SKIN EXFOLIATION [None]
